FAERS Safety Report 12035713 (Version 1)
Quarter: 2016Q1

REPORT INFORMATION
  Report Type: Spontaneous
  Country: PL (occurrence: PL)
  Receive Date: 20160207
  Receipt Date: 20160207
  Transmission Date: 20160526
  Serious: Yes (Other)
  Sender: FDA-Public Use
  Company Number: PL-TEVA-630718ACC

PATIENT
  Sex: Male
  Weight: 120 kg

DRUGS (2)
  1. EQUORAL [Suspect]
     Active Substance: CYCLOSPORINE
     Indication: PSORIATIC ARTHROPATHY
  2. EQUORAL [Suspect]
     Active Substance: CYCLOSPORINE
     Indication: PSORIASIS
     Dosage: DOSE: INITIALLY 400 MG; THEN 300 MG
     Route: 048
     Dates: start: 20150811, end: 20151016

REACTIONS (4)
  - Headache [Unknown]
  - Blood urea increased [Unknown]
  - Blood pressure increased [Unknown]
  - Blood creatinine increased [Unknown]
